FAERS Safety Report 7395311-4 (Version None)
Quarter: 2011Q2

REPORT INFORMATION
  Report Type: 
  Country: None (occurrence: None)
  Receive Date: 20110405
  Receipt Date: 20110328
  Transmission Date: 20111010
  Serious: Yes (Other)
  Sender: FDA-Public Use
  Company Number: AU-ASTRAZENECA-2011SE09366

PATIENT
  Age: 58 Year
  Sex: Female
  Weight: 88 kg

DRUGS (7)
  1. LEVOTHYROXINE SODIUM [Concomitant]
  2. LANTUS [Concomitant]
     Indication: DIABETES MELLITUS
     Route: 058
     Dates: start: 20100901
  3. NEXIUM [Concomitant]
     Indication: GASTRIC PH INCREASED
     Route: 048
  4. ESTRADERM [Concomitant]
  5. CATAPRES [Concomitant]
     Indication: BLOOD PRESSURE
     Route: 048
     Dates: start: 20100901
  6. FASLODEX [Suspect]
     Indication: BREAST CANCER
     Route: 030
  7. EZETIMIBE [Concomitant]
     Indication: BLOOD CHOLESTEROL
     Route: 048

REACTIONS (7)
  - FEELING COLD [None]
  - BLOOD PRESSURE INCREASED [None]
  - JOINT STIFFNESS [None]
  - NERVOUSNESS [None]
  - POLLAKIURIA [None]
  - NAUSEA [None]
  - PARAESTHESIA [None]
